FAERS Safety Report 24542958 (Version 1)
Quarter: 2024Q4

REPORT INFORMATION
  Report Type: Spontaneous
  Country: RU (occurrence: RU)
  Receive Date: 20241024
  Receipt Date: 20241024
  Transmission Date: 20250114
  Serious: Yes (Other)
  Sender: ROCHE
  Company Number: RU-ROCHE-3308109

PATIENT
  Age: 74 Year
  Sex: Female

DRUGS (5)
  1. ATEZOLIZUMAB [Suspect]
     Active Substance: ATEZOLIZUMAB
     Indication: Malignant melanoma
     Route: 041
     Dates: start: 20220408
  2. VEMURAFENIB [Suspect]
     Active Substance: VEMURAFENIB
     Indication: Malignant melanoma
     Route: 065
     Dates: start: 201907, end: 202003
  3. VEMURAFENIB [Suspect]
     Active Substance: VEMURAFENIB
     Route: 065
     Dates: start: 20220408
  4. COBIMETINIB [Suspect]
     Active Substance: COBIMETINIB
     Indication: Malignant melanoma
     Route: 065
     Dates: start: 201907, end: 202003
  5. COBIMETINIB [Suspect]
     Active Substance: COBIMETINIB
     Route: 065
     Dates: start: 20220408

REACTIONS (10)
  - Metastases to lung [Unknown]
  - Nausea [Unknown]
  - Vomiting [Unknown]
  - Therapy partial responder [Unknown]
  - Asthenia [Unknown]
  - Dry skin [Unknown]
  - Photosensitivity reaction [Unknown]
  - Dyspnoea [Unknown]
  - Lymphadenopathy [Unknown]
  - Lymphadenopathy [Unknown]
